APPROVED DRUG PRODUCT: NAFTIN
Active Ingredient: NAFTIFINE HYDROCHLORIDE
Strength: 2%
Dosage Form/Route: CREAM;TOPICAL
Application: N019599 | Product #002 | TE Code: AB
Applicant: LEGACY PHARMA INC
Approved: Jan 13, 2012 | RLD: Yes | RS: Yes | Type: RX